FAERS Safety Report 9378971 (Version 2)
Quarter: 2013Q3

REPORT INFORMATION
  Report Type: Report from Study
  Country: FR (occurrence: FR)
  Receive Date: 20130702
  Receipt Date: 20130904
  Transmission Date: 20140515
  Serious: Yes (Other)
  Sender: FDA-Public Use
  Company Number: FR-BAYER-2013-013701

PATIENT
  Age: 59 Year
  Sex: Female

DRUGS (8)
  1. REGORAFENIB [Suspect]
     Indication: COLORECTAL CANCER METASTATIC
  2. REGORAFENIB [Suspect]
     Indication: COLORECTAL CANCER METASTATIC
     Dosage: 120 MG DAY
     Dates: start: 20130122
  3. REGORAFENIB [Suspect]
     Indication: COLORECTAL CANCER METASTATIC
     Dosage: UNK
     Dates: start: 20130730
  4. REGORAFENIB [Suspect]
     Indication: COLORECTAL CANCER METASTATIC
     Dosage: 120 MG DAY
     Dates: end: 20130827
  5. DAFALGAN CODEINE [Concomitant]
     Indication: MUSCULOSKELETAL CHEST PAIN
     Dosage: 1 DF, QD
     Dates: start: 20130114
  6. TIORFAN [Concomitant]
     Indication: DIARRHOEA
     Dosage: 1 DF, TID
     Dates: start: 2013
  7. DURAGESIC [Concomitant]
     Indication: PAIN
     Dosage: 12 ?G/H, UNK
     Dates: start: 20130624
  8. LYRICA [Concomitant]
     Dosage: 1 DF, BID
     Dates: start: 20130624

REACTIONS (12)
  - Eastern Cooperative Oncology Group performance status worsened [None]
  - Colorectal cancer metastatic [None]
  - Stomatitis [Recovering/Resolving]
  - Aspartate aminotransferase increased [None]
  - Blood thyroid stimulating hormone abnormal [None]
  - Blood pressure increased [None]
  - Hypokalaemia [None]
  - Hyperamylasaemia [None]
  - Palmar-plantar erythrodysaesthesia syndrome [Recovered/Resolved]
  - Intestinal obstruction [None]
  - Skin fissures [Recovered/Resolved]
  - Stomatitis [Recovered/Resolved]
